FAERS Safety Report 6759410-X (Version None)
Quarter: 2010Q2

REPORT INFORMATION
  Report Type: 
  Country: None (occurrence: None)
  Receive Date: 20100603
  Receipt Date: 20100518
  Transmission Date: 20101027
  Serious: Yes (Other)
  Sender: FDA-Public Use
  Company Number: ACO_00882_2010

PATIENT
  Sex: Female
  Weight: 74.8435 kg

DRUGS (5)
  1. AMPYRA [Suspect]
     Indication: MULTIPLE SCLEROSIS
     Dosage: 10 MG BID ORAL
     Route: 048
     Dates: start: 20100515
  2. COPAXONE [Concomitant]
  3. VYVANASE [Concomitant]
  4. FLOMAX [Concomitant]
  5. HYDROCODONE [Concomitant]

REACTIONS (9)
  - BALANCE DISORDER [None]
  - COLD SWEAT [None]
  - FALL [None]
  - FEELING ABNORMAL [None]
  - HEADACHE [None]
  - MUSCULOSKELETAL STIFFNESS [None]
  - NAUSEA [None]
  - SYNCOPE [None]
  - TREMOR [None]
